FAERS Safety Report 9863882 (Version 1)
Quarter: 2014Q1

REPORT INFORMATION
  Report Type: Spontaneous
  Country: JP (occurrence: JP)
  Receive Date: 20140203
  Receipt Date: 20140203
  Transmission Date: 20141002
  Serious: Yes (Other)
  Sender: FDA-Public Use
  Company Number: JP-GLAXOSMITHKLINE-B0965154A

PATIENT
  Age: 10 Year
  Sex: Male

DRUGS (1)
  1. RELENZA [Suspect]
     Indication: INFLUENZA
     Route: 055
     Dates: start: 20140127

REACTIONS (5)
  - Delirium [Recovering/Resolving]
  - Hypoaesthesia [Recovering/Resolving]
  - Bruxism [Recovering/Resolving]
  - Abnormal behaviour [Recovering/Resolving]
  - Sleep talking [Recovering/Resolving]
